FAERS Safety Report 5122771-1 (Version None)
Quarter: 2006Q4

REPORT INFORMATION
  Report Type: 
  Country: None (occurrence: None)
  Receive Date: 20061009
  Receipt Date: 20010402
  Transmission Date: 20070319
  Serious: Yes (Hospitalization, Other)
  Sender: FDA-Public Use
  Company Number: PHRM2001FR01019

PATIENT
  Age: 60 Year
  Sex: Male

DRUGS (5)
  1. LEPONEX [Suspect]
     Indication: DELIRIUM
     Dosage: 250 MG/DAY
     Route: 048
  2. PRETERAX [Suspect]
     Dosage: 0.624/2 MG/DAY
     Route: 048
  3. RIVOTRIL [Suspect]
     Dosage: 2 MG/DAY
     Route: 048
  4. PROZAC [Suspect]
     Dosage: 20 MG/DAY
     Route: 048
  5. CHRONADALATE [Concomitant]
     Dosage: 30 MG/DAY

REACTIONS (24)
  - ALANINE AMINOTRANSFERASE INCREASED [None]
  - ASPARTATE AMINOTRANSFERASE INCREASED [None]
  - BLOOD BICARBONATE INCREASED [None]
  - BLOOD CREATINE PHOSPHOKINASE INCREASED [None]
  - BLOOD LACTATE DEHYDROGENASE INCREASED [None]
  - BLOOD PH INCREASED [None]
  - CARDIOMEGALY [None]
  - CHEST PAIN [None]
  - CYTOLYTIC HEPATITIS [None]
  - DIASTOLIC DYSFUNCTION [None]
  - DYSPNOEA [None]
  - JUGULAR VEIN THROMBOSIS [None]
  - LIPOMA EXCISION [None]
  - OXYGEN SATURATION DECREASED [None]
  - PCO2 INCREASED [None]
  - PLEURAL EFFUSION [None]
  - PNEUMONIA [None]
  - PO2 DECREASED [None]
  - PULMONARY ARTERIAL PRESSURE INCREASED [None]
  - PULMONARY EMBOLISM [None]
  - PULMONARY INFARCTION [None]
  - PYREXIA [None]
  - URINARY TRACT INFECTION [None]
  - VENTRICULAR HYPERTROPHY [None]
